FAERS Safety Report 4421369-8 (Version None)
Quarter: 2004Q3

REPORT INFORMATION
  Report Type: 
  Country: None (occurrence: None)
  Receive Date: 20040804
  Receipt Date: 20040720
  Transmission Date: 20050211
  Serious: Yes (Other)
  Sender: FDA-Public Use
  Company Number: 2004224947GB

PATIENT
  Age: 45 Year
  Sex: Male
  Weight: 81.8 kg

DRUGS (2)
  1. BEXTRA [Suspect]
     Indication: OSTEOARTHRITIS
     Dosage: QD, ORAL
     Route: 048
     Dates: start: 20040604, end: 20040705
  2. FUCIDIN H (FUSIDATE SODIUM) [Concomitant]

REACTIONS (1)
  - RASH PRURITIC [None]
